FAERS Safety Report 6804390-1 (Version None)
Quarter: 2010Q2

REPORT INFORMATION
  Report Type: 
  Country: None (occurrence: None)
  Receive Date: 20100628
  Receipt Date: 20070321
  Transmission Date: 20101027
  Serious: No
  Sender: FDA-Public Use
  Company Number: US-PFIZER INC-2007005399

PATIENT
  Sex: Male
  Weight: 68.95 kg

DRUGS (6)
  1. XALATAN [Suspect]
     Indication: INTRAOCULAR PRESSURE TEST
     Route: 031
     Dates: start: 20060914
  2. XALATAN [Suspect]
     Indication: OPEN ANGLE GLAUCOMA
  3. VYTORIN [Concomitant]
  4. ACETYLSALICYLIC ACID [Concomitant]
  5. FOLIC ACID [Concomitant]
  6. VITAMINS [Concomitant]

REACTIONS (3)
  - DRY MOUTH [None]
  - FATIGUE [None]
  - MUSCLE DISORDER [None]
